FAERS Safety Report 9476564 (Version 1)
Quarter: 2013Q3

REPORT INFORMATION
  Report Type: Spontaneous
  Country: US (occurrence: US)
  Receive Date: 20130826
  Receipt Date: 20130826
  Transmission Date: 20140515
  Serious: No
  Sender: FDA-Public Use
  Company Number: US-ROXANE LABORATORIES, INC.-2013-RO-01398RO

PATIENT
  Sex: Female

DRUGS (1)
  1. METHADONE [Suspect]
     Indication: PAIN
     Route: 048

REACTIONS (5)
  - Tooth disorder [Not Recovered/Not Resolved]
  - Teeth brittle [Not Recovered/Not Resolved]
  - Dental caries [Not Recovered/Not Resolved]
  - Tooth abscess [Not Recovered/Not Resolved]
  - Pain [Not Recovered/Not Resolved]
